FAERS Safety Report 11718344 (Version 1)
Quarter: 2015Q4

REPORT INFORMATION
  Report Type: Spontaneous
  Country: US (occurrence: US)
  Receive Date: 20151110
  Receipt Date: 20151110
  Transmission Date: 20160304
  Serious: Yes (Hospitalization)
  Sender: FDA-Public Use
  Company Number: US-BAYER-2015-463263

PATIENT
  Age: 2 Year
  Sex: Female
  Weight: 13.15 kg

DRUGS (2)
  1. MIRALAX [Suspect]
     Active Substance: POLYETHYLENE GLYCOL 3350
     Indication: CONSTIPATION
     Dosage: 1 DF, QD
     Route: 048
     Dates: start: 20151103, end: 20151104
  2. MIRALAX [Suspect]
     Active Substance: POLYETHYLENE GLYCOL 3350
     Indication: CONSTIPATION
     Dosage: 0.5 DF, QD
     Route: 048
     Dates: start: 20151029, end: 20151102

REACTIONS (3)
  - Urticaria [Not Recovered/Not Resolved]
  - Product use issue [None]
  - Generalised erythema [None]

NARRATIVE: CASE EVENT DATE: 20151029
